FAERS Safety Report 5164468-8 (Version None)
Quarter: 2006Q4

REPORT INFORMATION
  Report Type: 
  Country: None (occurrence: None)
  Receive Date: 20061205
  Receipt Date: 20061201
  Transmission Date: 20070319
  Serious: Yes (Death, Hospitalization)
  Sender: FDA-Public Use
  Company Number: US-NOVOPROD-258988

PATIENT
  Age: 71 Year

DRUGS (1)
  1. NOVOSEVEN [Suspect]
     Indication: HAEMORRHAGE CORONARY ARTERY
     Dosage: UNKNOWN
     Route: 042

REACTIONS (2)
  - GRAFT THROMBOSIS [None]
  - THROMBOSIS [None]
